FAERS Safety Report 8010993-1 (Version None)
Quarter: 2011Q4

REPORT INFORMATION
  Report Type: 
  Country: None (occurrence: None)
  Receive Date: 20111228
  Receipt Date: 20111223
  Transmission Date: 20120403
  Serious: Yes (Death)
  Sender: FDA-Public Use
  Company Number: US-PFIZER INC-2011309098

PATIENT

DRUGS (2)
  1. LIPITOR [Suspect]
     Dosage: UNK
  2. PROTONIX [Suspect]
     Dosage: 40 MG, UNK

REACTIONS (1)
  - DEATH [None]
